FAERS Safety Report 9900227 (Version 1)
Quarter: 2014Q1

REPORT INFORMATION
  Report Type: Spontaneous
  Country: US (occurrence: US)
  Receive Date: 20140215
  Receipt Date: 20140215
  Transmission Date: 20141002
  Serious: Yes (Other)
  Sender: FDA-Public Use
  Company Number: US-ROCHE-1349222

PATIENT
  Age: 67 Year
  Sex: Female

DRUGS (2)
  1. CEFTRIAXONE [Suspect]
     Indication: INFECTION
     Route: 065
  2. VANCOMYCIN [Concomitant]

REACTIONS (3)
  - Drug reaction with eosinophilia and systemic symptoms [Unknown]
  - Cerebrovascular accident [Unknown]
  - Encephalopathy [Unknown]
